FAERS Safety Report 4635919-X (Version None)
Quarter: 2005Q2

REPORT INFORMATION
  Report Type: 
  Country: None (occurrence: None)
  Receive Date: 20050413
  Receipt Date: 20050404
  Transmission Date: 20051028
  Serious: Yes (Hospitalization)
  Sender: FDA-Public Use
  Company Number: S05-USA-01522-01

PATIENT
  Age: 83 Year
  Sex: Male
  Weight: 82.5547 kg

DRUGS (10)
  1. NAMENDA [Suspect]
     Indication: DEMENTIA ALZHEIMER'S TYPE
     Dosage: 15 MG QD PO
     Route: 048
     Dates: start: 20050101, end: 20050315
  2. NAMENDA [Suspect]
     Indication: DEMENTIA ALZHEIMER'S TYPE
     Dosage: 5 MG QD PO
     Route: 048
     Dates: start: 20050101, end: 20050101
  3. NAMENDA [Suspect]
     Indication: DEMENTIA ALZHEIMER'S TYPE
     Dosage: 5 MG BID PO
     Route: 048
     Dates: start: 20050101, end: 20050101
  4. PLAQUENIL [Concomitant]
  5. ZANTAC [Concomitant]
  6. CELEBREX [Concomitant]
  7. TIMOLOL MALEATE [Concomitant]
  8. HUMULIN 70/30 (HUMAN INSULIN NPH/REGULAR 70/30) [Concomitant]
  9. TRANXENE [Concomitant]
  10. OCUVITE (VITAMIN A/VITAMINE/MINERALS) [Concomitant]

REACTIONS (7)
  - BLOOD PRESSURE SYSTOLIC INCREASED [None]
  - DIABETES MELLITUS INADEQUATE CONTROL [None]
  - HYPERGLYCAEMIA [None]
  - HYPONATRAEMIA [None]
  - OSTEOARTHRITIS [None]
  - RENAL FAILURE [None]
  - RESPIRATORY RATE INCREASED [None]
